FAERS Safety Report 8834400 (Version 1)
Quarter: 2012Q4

REPORT INFORMATION
  Report Type: Spontaneous
  Country: US (occurrence: None)
  Receive Date: 20121010
  Receipt Date: 20121010
  Transmission Date: 20130627
  Serious: No
  Sender: FDA-Public Use
  Company Number: None

PATIENT
  Age: 40 Year
  Sex: Female
  Weight: 58.51 kg

DRUGS (2)
  1. MIRENA [Suspect]
     Indication: MENSTRUATION ABNORMAL
     Dosage: still have in me
     Dates: start: 20071015, end: 20121010
  2. MIRENA [Suspect]
     Indication: BIRTH CONTROL
     Dosage: still have in me
     Dates: start: 20071015, end: 20121010

REACTIONS (2)
  - Nephrolithiasis [None]
  - Device dislocation [None]
